FAERS Safety Report 5038217-8 (Version None)
Quarter: 2006Q2

REPORT INFORMATION
  Report Type: 
  Country: None (occurrence: None)
  Receive Date: 20060626
  Receipt Date: 20060614
  Transmission Date: 20061013
  Serious: Yes (Hospitalization)
  Sender: FDA-Public Use
  Company Number: 2006VX000704

PATIENT
  Sex: Male

DRUGS (1)
  1. INTERFERON ALFACON-1 [Suspect]
     Indication: HEPATITIS C
     Dosage: 15 UG; QD;

REACTIONS (4)
  - ASCITES [None]
  - DISEASE PROGRESSION [None]
  - PLEURAL EFFUSION [None]
  - UNEVALUABLE EVENT [None]
